FAERS Safety Report 8193610-X (Version None)
Quarter: 2012Q1

REPORT INFORMATION
  Report Type: 
  Country: None (occurrence: None)
  Receive Date: 20120308
  Receipt Date: 20120227
  Transmission Date: 20120608
  Serious: Yes (Other)
  Sender: FDA-Public Use
  Company Number: CA-ROCHE-1045882

PATIENT
  Sex: Male

DRUGS (2)
  1. XOLAIR [Suspect]
     Dates: start: 20111012
  2. XOLAIR [Suspect]
     Indication: ASTHMA
     Route: 058
     Dates: start: 20100823

REACTIONS (7)
  - BRONCHITIS [None]
  - COUGH [None]
  - PNEUMONIA [None]
  - NASAL CONGESTION [None]
  - MALAISE [None]
  - NASOPHARYNGITIS [None]
  - INJECTION SITE PAIN [None]
